FAERS Safety Report 5705667-3 (Version None)
Quarter: 2008Q2

REPORT INFORMATION
  Report Type: 
  Country: None (occurrence: None)
  Receive Date: 20080415
  Receipt Date: 20080404
  Transmission Date: 20081010
  Serious: Yes (Other)
  Sender: FDA-Public Use
  Company Number: DE-JNJFOC-20080305416

PATIENT
  Sex: Male

DRUGS (3)
  1. DURAGESIC-100 [Suspect]
     Indication: PROCEDURAL PAIN
     Route: 062
  2. IBUPROFEN [Concomitant]
     Route: 065
  3. NOVALGIN [Concomitant]
     Route: 065

REACTIONS (2)
  - GASTRITIS [None]
  - OFF LABEL USE [None]
